FAERS Safety Report 6575583-6 (Version None)
Quarter: 2010Q1

REPORT INFORMATION
  Report Type: 
  Country: None (occurrence: None)
  Receive Date: 20100209
  Receipt Date: 20100204
  Transmission Date: 20100710
  Serious: Yes (Hospitalization)
  Sender: FDA-Public Use
  Company Number: A0816769A

PATIENT
  Age: 58 Year
  Sex: Female

DRUGS (2)
  1. IMITREX [Suspect]
     Indication: MIGRAINE
     Dosage: 50MG AS REQUIRED
     Route: 048
     Dates: start: 19990101
  2. COLD MEDICATION [Concomitant]

REACTIONS (6)
  - DRUG INEFFECTIVE [None]
  - HEADACHE [None]
  - HORNER'S SYNDROME [None]
  - LUMBAR PUNCTURE [None]
  - NAUSEA [None]
  - VOMITING [None]
